FAERS Safety Report 4322410-3 (Version None)
Quarter: 2004Q1

REPORT INFORMATION
  Report Type: 
  Country: None (occurrence: None)
  Receive Date: 20040323
  Receipt Date: 20040323
  Transmission Date: 20041129
  Serious: Yes (Disabling)
  Sender: FDA-Public Use
  Company Number: None

PATIENT
  Age: 26 Year
  Sex: Female
  Weight: 63.5036 kg

DRUGS (1)
  1. LARIAM [Suspect]
     Indication: MALARIA PROPHYLAXIS
     Dates: start: 19961127, end: 19961220

REACTIONS (3)
  - ACTIVITIES OF DAILY LIVING IMPAIRED [None]
  - DEPRESSION [None]
  - IMPAIRED WORK ABILITY [None]
